FAERS Safety Report 18746255 (Version 1)
Quarter: 2021Q1

REPORT INFORMATION
  Report Type: Spontaneous
  Country: US (occurrence: US)
  Receive Date: 20210115
  Receipt Date: 20210115
  Transmission Date: 20210419
  Serious: Yes (Other)
  Sender: FDA-Public Use
  Company Number: US-ASTRAZENECA-2021A004374

PATIENT
  Sex: Female

DRUGS (1)
  1. TAGRISSO [Suspect]
     Active Substance: OSIMERTINIB
     Indication: NON-SMALL CELL LUNG CANCER STAGE I
     Route: 048
     Dates: start: 2020

REACTIONS (5)
  - Diarrhoea haemorrhagic [Unknown]
  - Abdominal pain [Unknown]
  - Electrocardiogram QT prolonged [Recovering/Resolving]
  - Colitis [Unknown]
  - Rash [Unknown]

NARRATIVE: CASE EVENT DATE: 2020
